FAERS Safety Report 15262380 (Version 1)
Quarter: 2018Q3

REPORT INFORMATION
  Report Type: Spontaneous
  Country: US (occurrence: US)
  Receive Date: 20180809
  Receipt Date: 20180809
  Transmission Date: 20181010
  Serious: Yes (Hospitalization)
  Sender: FDA-Public Use
  Company Number: PHEH2018US033022

PATIENT
  Sex: Male

DRUGS (2)
  1. MEKINIST [Suspect]
     Active Substance: TRAMETINIB DIMETHYL SULFOXIDE
     Indication: LUNG NEOPLASM MALIGNANT
     Route: 065
  2. TAFINLAR [Suspect]
     Active Substance: DABRAFENIB MESYLATE
     Indication: LUNG NEOPLASM MALIGNANT
     Route: 065

REACTIONS (4)
  - Hypothermia [Recovered/Resolved]
  - Chills [Recovered/Resolved]
  - Product use in unapproved indication [Unknown]
  - Tremor [Recovered/Resolved]
